FAERS Safety Report 15254815 (Version 1)
Quarter: 2018Q3

REPORT INFORMATION
  Report Type: Spontaneous
  Country: US (occurrence: US)
  Receive Date: 20180808
  Receipt Date: 20180808
  Transmission Date: 20181010
  Serious: No
  Sender: FDA-Public Use
  Company Number: US-MYLANLABS-2018M1057749

PATIENT
  Sex: Male
  Weight: 109 kg

DRUGS (1)
  1. FENTANYL TRANSDERMAL SYSTEM [Suspect]
     Active Substance: FENTANYL
     Indication: PAIN MANAGEMENT
     Dosage: 50 ?G, UNK
     Route: 062
     Dates: start: 20180523

REACTIONS (2)
  - Product adhesion issue [Unknown]
  - Wrong technique in product usage process [Recovered/Resolved]
